FAERS Safety Report 8685460 (Version 2)
Quarter: 2012Q4

REPORT INFORMATION
  Report Type: Report from Study
  Country: CZ (occurrence: CZ)
  Receive Date: 20120726
  Receipt Date: 20121115
  Transmission Date: 20130627
  Serious: Yes (Hospitalization)
  Sender: FDA-Public Use
  Company Number: CZ-PFIZER INC-2012171159

PATIENT
  Age: 74 Year
  Sex: Male
  Weight: 100 kg

DRUGS (9)
  1. IRINOTECAN HCL [Suspect]
     Indication: COLORECTAL CANCER METASTATIC
     Dosage: 180 mg/m2 on day 1 every 14 days
     Route: 042
     Dates: start: 20120405
  2. FLUOROURACIL [Suspect]
     Indication: COLORECTAL CANCER METASTATIC
     Dosage: 400 mg/m2, on day 1 every 14 days
     Route: 040
     Dates: start: 20120405
  3. FLUOROURACIL [Suspect]
     Dosage: 2400 mg/m2, on days 1 and 2 every 14 days
     Route: 042
     Dates: start: 20120405
  4. FOLINIC ACID [Suspect]
     Indication: METASTATIC COLORECTAL CANCER
     Dosage: 400 mg/m2, on day 1, every 14 days
     Route: 042
     Dates: start: 20120405
  5. BLINDED THERAPY [Suspect]
     Indication: METASTATIC COLORECTAL CANCER
     Dosage: 8 mg/kg, every 14 days
     Route: 042
     Dates: start: 20120405, end: 20120425
  6. MILURIT [Concomitant]
     Indication: HYPERURICEMIA
  7. ESSENTIALE FORTE [Concomitant]
     Indication: ASPARTATE AMINOTRANSFERASE INCREASED
     Dosage: UNK
     Dates: start: 20120404
  8. GLURENORM [Concomitant]
     Indication: GLUCOSE INTOLERANCE
     Dosage: UNK
     Dates: start: 2000
  9. CERUCAL [Concomitant]
     Indication: PROPHYLAXIS
     Dosage: UNK
     Dates: start: 20120423

REACTIONS (1)
  - Hepatic failure [Recovered/Resolved]
